FAERS Safety Report 8745903 (Version 2)
Quarter: 2012Q4

REPORT INFORMATION
  Report Type: 
  Country: US (occurrence: US)
  Receive Date: 20120827
  Receipt Date: 20120919
  Transmission Date: 20130627
  Serious: Yes (Other)
  Sender: FDA-Public Use
  Company Number: US-PFIZER INC-2012207451

PATIENT
  Age: 64 Year
  Sex: Female
  Weight: 68.48 kg

DRUGS (7)
  1. LIPITOR [Suspect]
     Indication: BLOOD CHOLESTEROL INCREASED
     Dosage: 20 mg, daily
  2. ALPRAZOLAM [Concomitant]
     Dosage: UNK
  3. NEXIUM [Concomitant]
     Dosage: 40 mg, UNK
  4. HYDROCHLOROTHIAZIDE [Concomitant]
     Dosage: 25 mg, UNK
  5. LISINOPRIL [Concomitant]
     Dosage: 20 mg, UNK
  6. TRIHEXYPHENIDYL [Concomitant]
     Indication: TORTICOLLIS
     Dosage: 5mg two times daily
  7. ARTANE [Concomitant]
     Dosage: UNK

REACTIONS (5)
  - Hypertension [Unknown]
  - Glomerular filtration rate decreased [Unknown]
  - Gastrooesophageal reflux disease [Recovered/Resolved]
  - Dyspepsia [Unknown]
  - Drug ineffective [Unknown]
